FAERS Safety Report 9925609 (Version 1)
Quarter: 2014Q1

REPORT INFORMATION
  Report Type: Spontaneous
  Country: CA (occurrence: CA)
  Receive Date: 20140226
  Receipt Date: 20140226
  Transmission Date: 20141002
  Serious: Yes (Hospitalization, Other)
  Sender: FDA-Public Use
  Company Number: CA-PFIZER INC-2014047508

PATIENT
  Age: 45 Year
  Sex: Male

DRUGS (5)
  1. VENLAFAXINE HCL [Suspect]
     Indication: ANXIETY
     Dosage: 37.5 MG, DAILY
  2. VENLAFAXINE HCL [Interacting]
     Indication: DEPRESSION
     Dosage: 75 MG, DAILY
  3. DESIPRAMINE HYDROCHLORIDE [Interacting]
     Indication: PHANTOM PAIN
     Dosage: 50 MG, ALTERNATE DAY
  4. DESIPRAMINE HYDROCHLORIDE [Interacting]
     Dosage: 75 MG, ALTERNATE DAY
  5. DESIPRAMINE HYDROCHLORIDE [Interacting]
     Dosage: 50 MG, DAILY

REACTIONS (15)
  - Drug interaction [Recovered/Resolved]
  - Mania [Recovered/Resolved]
  - Homicidal ideation [Recovered/Resolved]
  - Rapid eye movements sleep abnormal [Recovered/Resolved]
  - Depression [Recovered/Resolved]
  - Anxiety [Recovered/Resolved]
  - Agitation [Recovered/Resolved]
  - Irritability [Recovered/Resolved]
  - Nightmare [Recovered/Resolved]
  - Sleep disorder [Recovered/Resolved]
  - Panic attack [Recovered/Resolved]
  - Tachyphrenia [Recovered/Resolved]
  - Anger [Recovered/Resolved]
  - Cognitive disorder [Recovered/Resolved]
  - Abnormal behaviour [Recovered/Resolved]
